FAERS Safety Report 6716488-7 (Version None)
Quarter: 2010Q2

REPORT INFORMATION
  Report Type: 
  Country: None (occurrence: None)
  Receive Date: 20100507
  Receipt Date: 20100423
  Transmission Date: 20101027
  Serious: Yes (Hospitalization)
  Sender: FDA-Public Use
  Company Number: FR-B.I. PHARMACEUTICALS,INC./RIDGEFIELD-2010-FF-00294FF

PATIENT
  Age: 44 Year
  Sex: Male

DRUGS (2)
  1. VIRAMUNE [Suspect]
     Indication: HIV INFECTION CDC CATEGORY A2
     Dosage: 400 MG
     Route: 048
     Dates: start: 20100101, end: 20100123
  2. TRUVADA [Suspect]
     Indication: HIV INFECTION CDC CATEGORY A2
     Dosage: 200MG/245MG
     Route: 048
     Dates: start: 20100101

REACTIONS (2)
  - CHOLESTASIS [None]
  - CYTOLYTIC HEPATITIS [None]
